FAERS Safety Report 9458921 (Version 2)
Quarter: 2013Q3

REPORT INFORMATION
  Report Type: Report from Study
  Country: TH (occurrence: TH)
  Receive Date: 20130814
  Receipt Date: 20130917
  Transmission Date: 20140515
  Serious: Yes (Death)
  Sender: FDA-Public Use
  Company Number: PHHY2013TH087578

PATIENT
  Sex: Male

DRUGS (1)
  1. GLIVEC [Suspect]
     Indication: CHRONIC MYELOID LEUKAEMIA
     Dosage: 400 MG, UNK

REACTIONS (4)
  - Infection [Fatal]
  - Blast crisis in myelogenous leukaemia [Fatal]
  - Chronic myeloid leukaemia [Fatal]
  - Leukaemia recurrent [Fatal]
